FAERS Safety Report 6371462-8 (Version None)
Quarter: 2009Q3

REPORT INFORMATION
  Report Type: 
  Country: None (occurrence: None)
  Receive Date: 20090923
  Receipt Date: 20080108
  Transmission Date: 20100115
  Serious: Yes (Hospitalization, Other)
  Sender: FDA-Public Use
  Company Number: US-ASTRAZENECA-2007UW11143

PATIENT
  Age: 4640 Day
  Sex: Female
  Weight: 115.2 kg

DRUGS (11)
  1. SEROQUEL [Suspect]
     Indication: BIPOLAR DISORDER
     Route: 048
     Dates: start: 20001121, end: 20050627
  2. SEROQUEL [Suspect]
     Route: 048
     Dates: start: 20031104
  3. NORETHINDRONE AND ETHINYL ESTRADIOL [Concomitant]
     Dates: start: 20031103
  4. TOPAMAX [Concomitant]
     Dates: start: 20031104
  5. TRAZODONE [Concomitant]
     Route: 048
     Dates: start: 20031104
  6. NAPROXEN [Concomitant]
     Dates: start: 20031203
  7. HUMULIN 70/30 [Concomitant]
     Dates: start: 20040901
  8. NOVOLIN 70/30 [Concomitant]
     Dates: start: 20041229
  9. ACTOS [Concomitant]
     Dates: start: 20040810
  10. GEODON [Concomitant]
     Dates: start: 20050822
  11. METFORMIN HCL [Concomitant]
     Dates: start: 20060123

REACTIONS (4)
  - DIABETES MELLITUS [None]
  - DIABETES MELLITUS INADEQUATE CONTROL [None]
  - TYPE 1 DIABETES MELLITUS [None]
  - TYPE 2 DIABETES MELLITUS [None]
